FAERS Safety Report 24611713 (Version 3)
Quarter: 2025Q3

REPORT INFORMATION
  Report Type: Report from Study
  Country: JP (occurrence: JP)
  Receive Date: 20241113
  Receipt Date: 20250809
  Transmission Date: 20251020
  Serious: Yes (Other)
  Sender: ALEXION PHARMACEUTICALS
  Company Number: JP-ASTRAZENECA-230079667_032320_P_1

PATIENT
  Age: 51 Year
  Sex: Female
  Weight: 42 kg

DRUGS (29)
  1. ANIFROLUMAB [Suspect]
     Active Substance: ANIFROLUMAB
     Indication: Systemic lupus erythematosus
     Dosage: 300 MILLIGRAM, Q4W
     Dates: start: 20230824
  2. PREDNISOLONE [Suspect]
     Active Substance: PREDNISOLONE
     Indication: Systemic lupus erythematosus
     Dates: start: 20230728, end: 20230818
  3. PREDNISOLONE [Suspect]
     Active Substance: PREDNISOLONE
     Dates: start: 20231222, end: 20240104
  4. PREDNISOLONE [Suspect]
     Active Substance: PREDNISOLONE
     Dates: start: 20240105, end: 20240118
  5. PREDNISOLONE [Suspect]
     Active Substance: PREDNISOLONE
     Dates: start: 20240119, end: 20240201
  6. PREDNISOLONE [Suspect]
     Active Substance: PREDNISOLONE
     Dates: start: 20240202, end: 20240216
  7. PREDNISOLONE [Suspect]
     Active Substance: PREDNISOLONE
     Dates: start: 20240217, end: 20240315
  8. PREDNISOLONE [Suspect]
     Active Substance: PREDNISOLONE
     Dates: start: 20240316, end: 20240412
  9. PREDNISOLONE [Suspect]
     Active Substance: PREDNISOLONE
     Dates: start: 20240413, end: 20240510
  10. PREDNISOLONE [Suspect]
     Active Substance: PREDNISOLONE
     Dates: start: 20240511, end: 20240607
  11. PREDNISOLONE [Suspect]
     Active Substance: PREDNISOLONE
     Dates: start: 20240608, end: 20240705
  12. PREDNISOLONE [Suspect]
     Active Substance: PREDNISOLONE
     Dates: start: 20240706, end: 20240802
  13. PREDNISOLONE [Suspect]
     Active Substance: PREDNISOLONE
     Dates: start: 20240803, end: 20240830
  14. PREDNISOLONE [Suspect]
     Active Substance: PREDNISOLONE
     Dates: start: 20240831, end: 20240927
  15. DECADRON [Concomitant]
     Active Substance: DEXAMETHASONE
     Indication: Systemic lupus erythematosus
     Dates: start: 20230819, end: 20230904
  16. DECADRON [Concomitant]
     Active Substance: DEXAMETHASONE
     Dates: start: 20230905, end: 20230927
  17. DECADRON [Concomitant]
     Active Substance: DEXAMETHASONE
     Dates: start: 20230928, end: 20231019
  18. DECADRON [Concomitant]
     Active Substance: DEXAMETHASONE
     Dates: start: 20231020, end: 20231102
  19. DECADRON [Concomitant]
     Active Substance: DEXAMETHASONE
     Dates: start: 20231103, end: 20231121
  20. DECADRON [Concomitant]
     Active Substance: DEXAMETHASONE
     Dates: start: 20231122, end: 20231221
  21. TACROLIMUS [Concomitant]
     Active Substance: TACROLIMUS
     Indication: Systemic lupus erythematosus
  22. CELLCEPT [Concomitant]
     Active Substance: MYCOPHENOLATE MOFETIL
  23. ASPIRIN [Concomitant]
     Active Substance: ASPIRIN
     Indication: Prophylaxis
  24. ASPIRIN [Concomitant]
     Active Substance: ASPIRIN
  25. ESOMEPRAZOLE [Concomitant]
     Active Substance: ESOMEPRAZOLE
     Indication: Prophylaxis
  26. ELDECALCITOL [Concomitant]
     Active Substance: ELDECALCITOL
     Indication: Osteoporosis
  27. SULFAMETHOXAZOLE\TRIMETHOPRIM [Concomitant]
     Active Substance: SULFAMETHOXAZOLE\TRIMETHOPRIM
     Indication: Prophylaxis
  28. ALENDRONATE [Concomitant]
     Active Substance: ALENDRONATE SODIUM
     Indication: Osteoporosis
     Dosage: NUMBER OF SEPARATE DOSAGES UNKNOWN
     Dates: start: 20230821
  29. Tacrolimus Actavis [Concomitant]
     Indication: Systemic lupus erythematosus

REACTIONS (4)
  - Cytomegalovirus viraemia [Recovered/Resolved]
  - Dyslipidaemia [Recovered/Resolved]
  - Hypertension [Recovered/Resolved]
  - C-reactive protein increased [Recovered/Resolved]

NARRATIVE: CASE EVENT DATE: 20230911
